FAERS Safety Report 12897171 (Version 1)
Quarter: 2016Q4

REPORT INFORMATION
  Report Type: Spontaneous
  Country: US (occurrence: US)
  Receive Date: 20161031
  Receipt Date: 20161031
  Transmission Date: 20170207
  Serious: Yes (Hospitalization, Disabling)
  Sender: FDA-Public Use
  Company Number: None

PATIENT
  Age: 46 Year
  Sex: Male
  Weight: 112.04 kg

DRUGS (10)
  1. GLIMEPIRIDE. [Concomitant]
     Active Substance: GLIMEPIRIDE
  2. LOSARTAN POTASSIUM. [Concomitant]
     Active Substance: LOSARTAN POTASSIUM
  3. METOPROLOL TARTRATE. [Concomitant]
     Active Substance: METOPROLOL TARTRATE
  4. TAMSULOSIN HCL [Concomitant]
     Active Substance: TAMSULOSIN
  5. RANITIDINE. [Concomitant]
     Active Substance: RANITIDINE
  6. METFORMIN [Concomitant]
     Active Substance: METFORMIN HYDROCHLORIDE
  7. TRADJENTA [Concomitant]
     Active Substance: LINAGLIPTIN
  8. ZETIA [Concomitant]
     Active Substance: EZETIMIBE
  9. ABILIFY [Suspect]
     Active Substance: ARIPIPRAZOLE
     Indication: SCHIZOPHRENIA
     Dosage: ABILIFY-ARIPIPRAZOLE - 1 PILL PO ONCE EVERY MORNING
     Route: 048
     Dates: start: 2004, end: 20150904
  10. SAPHRIS [Concomitant]
     Active Substance: ASENAPINE MALEATE

REACTIONS (2)
  - Pain in extremity [None]
  - Neuropathy peripheral [None]

NARRATIVE: CASE EVENT DATE: 200410
